FAERS Safety Report 21215206 (Version 1)
Quarter: 2022Q3

REPORT INFORMATION
  Report Type: Spontaneous
  Country: US (occurrence: None)
  Receive Date: 20220815
  Receipt Date: 20220815
  Transmission Date: 20221027
  Serious: Yes (Death)
  Sender: FDA-Public Use
  Company Number: None

PATIENT
  Sex: Male

DRUGS (1)
  1. TEMOZOLOMIDE [Suspect]
     Active Substance: TEMOZOLOMIDE
     Indication: Brain neoplasm malignant
     Dosage: 5 MG ORAL?TAKE 2 CAPSULES BY MOUTH DAILY WITH ONE OTHER TEMOZOLOMIDE PRESCRIPTION FOR 210MG TOTAL. T
     Route: 048
     Dates: start: 20210928

REACTIONS (1)
  - Death [None]
